FAERS Safety Report 6414875-8 (Version None)
Quarter: 2009Q4

REPORT INFORMATION
  Report Type: 
  Country: None (occurrence: None)
  Receive Date: 20091026
  Receipt Date: 20091026
  Transmission Date: 20100525
  Serious: Yes (Other)
  Sender: FDA-Public Use
  Company Number: None

PATIENT
  Sex: Male
  Weight: 92.9874 kg

DRUGS (1)
  1. BUPROPION HCL [Suspect]
     Indication: DEPRESSION
     Dosage: ONE PILL ONCE DAILY PO
     Route: 048

REACTIONS (3)
  - EMOTIONAL DISORDER [None]
  - MENTAL DISORDER [None]
  - PRODUCT SUBSTITUTION ISSUE [None]
